FAERS Safety Report 10008730 (Version 2)
Quarter: 2014Q1

REPORT INFORMATION
  Report Type: Spontaneous
  Country: US (occurrence: US)
  Receive Date: 20140312
  Receipt Date: 20140312
  Transmission Date: 20141002
  Serious: No
  Sender: FDA-Public Use
  Company Number: US-INCYTE CORPORATION-2012IN000229

PATIENT
  Age: 84 Year
  Sex: Female

DRUGS (10)
  1. JAKAFI [Suspect]
     Indication: MYELOFIBROSIS
     Dosage: 10 MG, TID
     Route: 048
     Dates: start: 20120130
  2. JAKAFI [Suspect]
     Dosage: 2X10 MG TABLETS AM AND 2X 10 MG TABLETS PM, BID
     Route: 048
     Dates: start: 20120301
  3. COUMADIN [Concomitant]
     Dosage: 5 MG, QD
     Route: 048
  4. SYNTHROID [Concomitant]
     Dosage: 125 MCG, QD
     Route: 048
  5. CITALOPRAM [Concomitant]
     Dosage: 20 MG, QD
     Route: 048
  6. FUROSEMIDE [Concomitant]
     Dosage: 20 MG, BID
     Route: 048
  7. ASPIRIN [Concomitant]
     Dosage: 81 MG, QD
     Route: 048
  8. NEXIUM [Concomitant]
     Dosage: 40 MG, QD
     Route: 048
  9. SPIRIVA [Concomitant]
     Dosage: 18 MCG, QD
     Route: 048
  10. ALLOPURINOL [Concomitant]
     Dosage: 100 MG, QD
     Route: 048

REACTIONS (5)
  - Haematochezia [Not Recovered/Not Resolved]
  - Abdominal pain upper [Not Recovered/Not Resolved]
  - Haemorrhoids [Not Recovered/Not Resolved]
  - Local swelling [Not Recovered/Not Resolved]
  - Wound [Not Recovered/Not Resolved]
